FAERS Safety Report 16712253 (Version 8)
Quarter: 2022Q3

REPORT INFORMATION
  Report Type: Report from Study
  Country: US (occurrence: US)
  Receive Date: 20190816
  Receipt Date: 20220708
  Transmission Date: 20221026
  Serious: Yes (Other)
  Sender: FDA-Public Use
  Company Number: None

PATIENT
  Sex: Female

DRUGS (1)
  1. COSENTYX [Suspect]
     Active Substance: SECUKINUMAB
     Indication: Product used for unknown indication
     Dosage: UNK
     Route: 065

REACTIONS (6)
  - Macular degeneration [Unknown]
  - Blindness [Unknown]
  - Cataract [Unknown]
  - Skin disorder [Unknown]
  - Contusion [Unknown]
  - Wrong technique in product usage process [Unknown]
